FAERS Safety Report 9052702 (Version 3)
Quarter: 2013Q2

REPORT INFORMATION
  Report Type: Spontaneous
  Country: US (occurrence: US)
  Receive Date: 20130207
  Receipt Date: 20130523
  Transmission Date: 20140414
  Serious: Yes (Hospitalization, Congenital Anomaly, Other)
  Sender: FDA-Public Use
  Company Number: US-JNJFOC-20130202631

PATIENT
  Sex: Female

DRUGS (3)
  1. TOPAMAX [Suspect]
     Indication: FOETAL EXPOSURE DURING PREGNANCY
     Route: 064
     Dates: start: 2000, end: 2009
  2. FOLIC ACID [Concomitant]
     Route: 064
  3. MULTIVITAMINS [Concomitant]
     Route: 064

REACTIONS (15)
  - Cleft lip and palate [Recovering/Resolving]
  - Emotional disorder [Unknown]
  - Intraventricular haemorrhage neonatal [Unknown]
  - Periventricular leukomalacia [Unknown]
  - Septum pellucidum agenesis [Unknown]
  - Brain malformation [Unknown]
  - Trisomy 13 [Unknown]
  - Speech disorder [Unknown]
  - Congenital anomaly [Unknown]
  - Eustachian tube dysfunction [Unknown]
  - Deafness [Unknown]
  - Failure to thrive [Unknown]
  - Atrial septal defect [Unknown]
  - Tympanic membrane atrophic [Unknown]
  - Otitis media [Unknown]
